FAERS Safety Report 14340315 (Version 2)
Quarter: 2018Q2

REPORT INFORMATION
  Report Type: Report from Study
  Country: None (occurrence: BR)
  Receive Date: 20180101
  Receipt Date: 20180420
  Transmission Date: 20180711
  Serious: Yes (Other)
  Sender: FDA-Public Use
  Company Number: BR-ABBVIE-17K-020-2206652-00

PATIENT
  Sex: Female
  Weight: 54 kg

DRUGS (2)
  1. HUMIRA [Suspect]
     Active Substance: ADALIMUMAB
     Indication: AXIAL SPONDYLOARTHRITIS
     Route: 058
     Dates: start: 20170619, end: 20180323
  2. DUAL [Concomitant]
     Indication: FIBROMYALGIA

REACTIONS (10)
  - Osteoarthritis [Recovering/Resolving]
  - Bone marrow oedema [Unknown]
  - Cartilage atrophy [Unknown]
  - Tendon disorder [Unknown]
  - Osteoarthritis [Recovering/Resolving]
  - Synovitis [Unknown]
  - Bone neoplasm [Not Recovered/Not Resolved]
  - Enchondromatosis [Unknown]
  - Fibromyalgia [Unknown]
  - Benign joint neoplasm [Unknown]

NARRATIVE: CASE EVENT DATE: 2017
